FAERS Safety Report 13736332 (Version 1)
Quarter: 2017Q3

REPORT INFORMATION
  Report Type: Not Available
  Country: ES (occurrence: ES)
  Receive Date: 20170710
  Receipt Date: 20170710
  Transmission Date: 20171127
  Serious: Yes (Other)
  Sender: FDA-Public Use
  Company Number: ES-ANIPHARMA-2017-ES-000025

PATIENT
  Age: 60 Year
  Sex: Male

DRUGS (2)
  1. SULFAMETHOXAZOLE + TRIMETHOPRIM (NON-SPECIFIC) [Suspect]
     Active Substance: SULFAMETHOXAZOLE\TRIMETHOPRIM
     Dosage: 400MG/80MG EVERY 24H
  2. TACROLIMUS. [Suspect]
     Active Substance: TACROLIMUS
     Dosage: 8MG EVERY 24H

REACTIONS (1)
  - Adrenocortical insufficiency acute [Unknown]
